FAERS Safety Report 5990041-5 (Version None)
Quarter: 2008Q4

REPORT INFORMATION
  Report Type: 
  Country: None (occurrence: None)
  Receive Date: 20081209
  Receipt Date: 20081125
  Transmission Date: 20090506
  Serious: Yes (Other)
  Sender: FDA-Public Use
  Company Number: 2008003063

PATIENT
  Sex: Male

DRUGS (12)
  1. TARCEVA [Suspect]
     Indication: NON-SMALL CELL LUNG CANCER
     Dosage: (150 MG, QD), ORAL
     Route: 048
     Dates: start: 20081117
  2. ASPIRIN [Concomitant]
  3. PRAVASTATIN [Concomitant]
  4. METOPROLOL TARTRATE [Concomitant]
  5. NEXIUM [Concomitant]
  6. MEGACE [Concomitant]
  7. FLORINEF [Concomitant]
  8. IRON (IRON) [Concomitant]
  9. TAMSULOSIN HCL [Concomitant]
  10. ZOLIDEX [Concomitant]
  11. FOSAMAX [Concomitant]
  12. POTASSIUM (POTASSIUM) [Concomitant]

REACTIONS (1)
  - CEREBRAL HAEMORRHAGE [None]
